FAERS Safety Report 5572952-8 (Version None)
Quarter: 2007Q4

REPORT INFORMATION
  Report Type: 
  Country: None (occurrence: None)
  Receive Date: 20071224
  Receipt Date: 20071217
  Transmission Date: 20080405
  Serious: Yes (Hospitalization)
  Sender: FDA-Public Use
  Company Number: FR-BRISTOL-MYERS SQUIBB COMPANY-14020820

PATIENT
  Age: 68 Year

DRUGS (4)
  1. CETUXIMAB [Suspect]
     Indication: COLON CANCER
     Dosage: MOST RECENT INFUSION ON 06-DEC-2007.
     Route: 041
     Dates: start: 20071206
  2. OXALIPLATIN [Suspect]
     Indication: COLON CANCER
     Dosage: MOST RECENT INFUSION ON 22-NOV-2007
     Route: 042
     Dates: start: 20071122
  3. FLUOROURACIL [Suspect]
     Indication: COLON CANCER
     Dosage: MOST RECENT INFUSION ON 22-NOV-2007
     Route: 042
     Dates: start: 20071122
  4. FOLINIC ACID [Suspect]
     Indication: COLON CANCER
     Dosage: MOST RECENT INFUSION ON 22-NOV-2007
     Route: 042
     Dates: start: 20071122

REACTIONS (3)
  - DISSEMINATED INTRAVASCULAR COAGULATION [None]
  - SEPTIC SHOCK [None]
  - THROMBOCYTOPENIA [None]
